FAERS Safety Report 8599172-7 (Version None)
Quarter: 2012Q3

REPORT INFORMATION
  Report Type: 
  Country: None (occurrence: None)
  Receive Date: 20120816
  Receipt Date: 20120809
  Transmission Date: 20120928
  Serious: Yes (Hospitalization, Other)
  Sender: FDA-Public Use
  Company Number: CA-ROCHE-782577

PATIENT
  Sex: Male
  Weight: 98.4 kg

DRUGS (20)
  1. SELENIUM [Concomitant]
     Dosage: DRUG NAME:VIT E
  2. FOLIC ACID [Concomitant]
  3. RAMIPRIL [Concomitant]
  4. ROACTEMRA [Suspect]
     Indication: RHEUMATOID ARTHRITIS
     Route: 042
  5. ALENDRONATE SODIUM [Concomitant]
     Dosage: DRUG NAME:ALENDRONATE
  6. CALCIUM [Concomitant]
  7. VITAMIN E [Concomitant]
     Dosage: DRUG NAME:VIT E
  8. RABEPRAZOLE SODIUM [Concomitant]
  9. PREDNISONE TAB [Concomitant]
  10. SPIRONOLACTONE [Concomitant]
  11. ASPIRIN [Concomitant]
  12. LIPITOR [Concomitant]
  13. VITAMIN D [Concomitant]
  14. ROACTEMRA [Suspect]
     Route: 042
  15. MAGNESIUM [Concomitant]
  16. BISOPROLOL [Concomitant]
  17. INSULIN [Concomitant]
     Dosage: 28 UNITS
  18. DIGOXIN [Concomitant]
  19. FUROSEMIDE [Concomitant]
  20. CITALOPRAM [Concomitant]

REACTIONS (11)
  - DYSPNOEA [None]
  - COUGH [None]
  - PNEUMONIA [None]
  - PLEURAL EFFUSION [None]
  - RASH [None]
  - THROMBOSIS [None]
  - CARDIAC DISORDER [None]
  - RED BLOOD CELL SEDIMENTATION RATE INCREASED [None]
  - OEDEMA PERIPHERAL [None]
  - PAIN IN EXTREMITY [None]
  - PYREXIA [None]
